FAERS Safety Report 6355675-7 (Version None)
Quarter: 2009Q3

REPORT INFORMATION
  Report Type: 
  Country: None (occurrence: None)
  Receive Date: 20090910
  Receipt Date: 20090902
  Transmission Date: 20100115
  Serious: Yes (Death)
  Sender: FDA-Public Use
  Company Number: 2009002771

PATIENT
  Age: 57 Year
  Sex: Male

DRUGS (1)
  1. EFFENTORA (TABLETS) [Suspect]
     Indication: CANCER PAIN
     Dosage: 600 MCG (100 MCG, 1 IN 4 HR), BU
     Route: 002
     Dates: start: 20090304, end: 20090305

REACTIONS (2)
  - DIZZINESS [None]
  - NAUSEA [None]
